FAERS Safety Report 7395762-8 (Version None)
Quarter: 2011Q2

REPORT INFORMATION
  Report Type: 
  Country: None (occurrence: None)
  Receive Date: 20110405
  Receipt Date: 20110329
  Transmission Date: 20111010
  Serious: Yes (Hospitalization)
  Sender: FDA-Public Use
  Company Number: US-ABBOTT-11P-163-0715468-00

PATIENT
  Sex: Female
  Weight: 52.21 kg

DRUGS (2)
  1. HUMIRA [Suspect]
     Indication: RHEUMATOID ARTHRITIS
     Dosage: ON HOLD FOR ONE MONTH IN OCT 2005
     Dates: start: 20040101, end: 20051001
  2. HUMIRA [Suspect]

REACTIONS (6)
  - URTICARIA [None]
  - VOMITING [None]
  - LOCALISED INFECTION [None]
  - PYREXIA [None]
  - ARTHRITIS [None]
  - LOCAL SWELLING [None]
